FAERS Safety Report 9112673 (Version 1)
Quarter: 2013Q1

REPORT INFORMATION
  Report Type: Spontaneous
  Country: AE (occurrence: AE)
  Receive Date: 20130211
  Receipt Date: 20130211
  Transmission Date: 20140127
  Serious: Yes (Other)
  Sender: FDA-Public Use
  Company Number: AE-ROCHE-1162732

PATIENT
  Sex: Male
  Weight: 136 kg

DRUGS (7)
  1. ACTEMRA [Suspect]
     Indication: SPONDYLITIS
     Route: 042
     Dates: start: 20121028
  2. ARAVA [Concomitant]
     Route: 065
  3. HUMIRA [Concomitant]
     Route: 058
  4. METHOTREXATE [Concomitant]
     Route: 065
  5. METHOTREXATE [Concomitant]
     Route: 065
  6. CELEBREX [Concomitant]
     Route: 065
  7. CELEBREX [Concomitant]
     Route: 065

REACTIONS (1)
  - Pustular psoriasis [Recovered/Resolved with Sequelae]
